FAERS Safety Report 10474064 (Version 1)
Quarter: 2014Q3

REPORT INFORMATION
  Report Type: Spontaneous
  Country: FR (occurrence: FR)
  Receive Date: 20140924
  Receipt Date: 20140924
  Transmission Date: 20150326
  Serious: Yes (Hospitalization)
  Sender: FDA-Public Use
  Company Number: FR-GLAXOSMITHKLINE-B1036011A

PATIENT
  Age: 28 Year
  Sex: Female

DRUGS (1)
  1. LAMOTRIGINE. [Suspect]
     Active Substance: LAMOTRIGINE
     Indication: EPILEPSY
     Route: 065

REACTIONS (14)
  - Lymphadenopathy [Unknown]
  - Anaemia [Unknown]
  - Lymphocyte morphology abnormal [Unknown]
  - Haematuria [Unknown]
  - Ill-defined disorder [Unknown]
  - Drug reaction with eosinophilia and systemic symptoms [Recovered/Resolved]
  - Rash maculo-papular [Unknown]
  - Pyrexia [Unknown]
  - Proteinuria [Unknown]
  - Diarrhoea haemorrhagic [Unknown]
  - Thrombocytopenia [Unknown]
  - Colitis ulcerative [Recovered/Resolved]
  - Face oedema [Unknown]
  - Nephritis [Unknown]
